FAERS Safety Report 19214415 (Version 3)
Quarter: 2021Q4

REPORT INFORMATION
  Report Type: Report from Study
  Country: None (occurrence: IL)
  Receive Date: 20210505
  Receipt Date: 20211013
  Transmission Date: 20220303
  Serious: Yes (Other)
  Sender: FDA-Public Use
  Company Number: IL-ABBVIE-21K-082-3888738-00

PATIENT
  Age: 70 Year
  Sex: Male
  Weight: 89 kg

DRUGS (27)
  1. VENETOCLAX [Suspect]
     Active Substance: VENETOCLAX
     Indication: Chronic lymphocytic leukaemia
     Dosage: RAMP-UP
     Route: 048
     Dates: start: 20210127, end: 20210202
  2. VENETOCLAX [Suspect]
     Active Substance: VENETOCLAX
     Dosage: RAMPUP
     Route: 048
     Dates: start: 20210203, end: 20210209
  3. VENETOCLAX [Suspect]
     Active Substance: VENETOCLAX
     Route: 048
     Dates: start: 20210210, end: 20210216
  4. VENETOCLAX [Suspect]
     Active Substance: VENETOCLAX
     Dosage: RAMPUP
     Route: 048
     Dates: start: 20210217, end: 20210223
  5. VENETOCLAX [Suspect]
     Active Substance: VENETOCLAX
     Dosage: INTERRUPTION DUE TO ADVERSE EVENT
     Route: 048
     Dates: start: 20210224, end: 20210303
  6. VENETOCLAX [Suspect]
     Active Substance: VENETOCLAX
     Route: 048
     Dates: start: 20210331
  7. RITUXIMAB [Suspect]
     Active Substance: RITUXIMAB
     Indication: Chronic lymphocytic leukaemia
     Dosage: CYCLE ONE
     Route: 065
     Dates: start: 20210303, end: 20210303
  8. RITUXIMAB [Suspect]
     Active Substance: RITUXIMAB
     Dosage: CYCLE TWO
     Route: 065
     Dates: start: 20210331, end: 20210331
  9. RITUXIMAB [Suspect]
     Active Substance: RITUXIMAB
     Dosage: CYCLE THREE
     Route: 065
     Dates: start: 20210428, end: 20210428
  10. IBRUTINIB [Suspect]
     Active Substance: IBRUTINIB
     Indication: Chronic lymphocytic leukaemia
     Dosage: TREATMENT COMPLETION
     Route: 065
     Dates: start: 20210127, end: 20210224
  11. BISOPROLOL FUMARATE [Concomitant]
     Active Substance: BISOPROLOL FUMARATE
     Indication: Hypertension
     Dates: start: 20201116
  12. EZECOR [Concomitant]
     Indication: Blood cholesterol increased
     Dates: start: 20201112
  13. SPIRIVA [Concomitant]
     Active Substance: TIOTROPIUM BROMIDE MONOHYDRATE
     Indication: Chronic obstructive pulmonary disease
     Dates: start: 20160922
  14. STATOR [Concomitant]
     Indication: Blood cholesterol increased
     Dates: start: 20201112
  15. RAMIPRIL [Concomitant]
     Active Substance: RAMIPRIL
     Indication: Hypertension
     Dates: start: 20201112
  16. VENTOLIN [Concomitant]
     Active Substance: ALBUTEROL SULFATE
     Indication: Chronic obstructive pulmonary disease
     Dates: start: 20160922
  17. ZOVIRAX [Concomitant]
     Active Substance: ACYCLOVIR
     Indication: Antiviral prophylaxis
     Dates: start: 20210303
  18. ALLOPURINOL [Concomitant]
     Active Substance: ALLOPURINOL
     Indication: Prophylaxis
     Dates: start: 20210303, end: 20210303
  19. COVID-19 VACCINE [Concomitant]
     Indication: COVID-19 prophylaxis
     Route: 050
     Dates: start: 20210103, end: 20210103
  20. COVID-19 VACCINE [Concomitant]
     Route: 050
     Dates: start: 20210124, end: 20210124
  21. LORATADINE [Concomitant]
     Active Substance: LORATADINE
     Indication: Pain management
     Dates: start: 20210623, end: 20210623
  22. LORATADINE [Concomitant]
     Active Substance: LORATADINE
     Indication: Antiallergic therapy
     Dates: start: 20210525, end: 20210525
  23. LORATADINE [Concomitant]
     Active Substance: LORATADINE
     Dates: start: 20210428, end: 20210428
  24. HYDROCORTISONE PANPHARMA [Concomitant]
     Indication: Antiallergic therapy
     Dates: start: 20210623, end: 20210623
  25. HYDROCORTISONE PANPHARMA [Concomitant]
     Dates: start: 20210428, end: 20210428
  26. HYDROCORTISONE PANPHARMA [Concomitant]
     Dates: start: 20210525, end: 20210525
  27. ACETAMINOPHEN [Concomitant]
     Active Substance: ACETAMINOPHEN
     Indication: Pain management

REACTIONS (2)
  - Hepatic enzyme abnormal [Recovered/Resolved]
  - Gastroenteritis [Recovered/Resolved]

NARRATIVE: CASE EVENT DATE: 20210303
